FAERS Safety Report 16062828 (Version 2)
Quarter: 2019Q2

REPORT INFORMATION
  Report Type: Spontaneous
  Country: US (occurrence: US)
  Receive Date: 20190312
  Receipt Date: 20190408
  Transmission Date: 20190711
  Serious: Yes (Other)
  Sender: FDA-Public Use
  Company Number: US-AKORN PHARMACEUTICALS-2019AKN00414

PATIENT
  Age: 16 Year
  Sex: Male
  Weight: 92.52 kg

DRUGS (1)
  1. MYORISAN [Suspect]
     Active Substance: ISOTRETINOIN
     Indication: ACNE
     Dosage: 40 MG, 2X/DAY
     Route: 048
     Dates: start: 20181022, end: 20190224

REACTIONS (4)
  - Social avoidant behaviour [Unknown]
  - Anxiety [Unknown]
  - Mood altered [Unknown]
  - Depressed mood [Unknown]

NARRATIVE: CASE EVENT DATE: 201901
